FAERS Safety Report 5771849-8 (Version None)
Quarter: 2008Q2

REPORT INFORMATION
  Report Type: 
  Country: None (occurrence: None)
  Receive Date: 20080613
  Receipt Date: 20080605
  Transmission Date: 20081010
  Serious: Yes (Other)
  Sender: FDA-Public Use
  Company Number: B0360743A

PATIENT
  Age: 43 Year
  Sex: Female

DRUGS (7)
  1. PAROXETINE HCL [Suspect]
     Route: 065
     Dates: start: 20000202
  2. PAROXETINE HCL [Suspect]
     Route: 065
  3. BUPROPION HYDROCHLORIDE [Concomitant]
     Route: 065
  4. CITALOPRAM HYDROBROMIDE [Concomitant]
     Dates: start: 20021010
  5. FEMATRIX [Concomitant]
     Indication: HORMONE REPLACEMENT THERAPY
     Dates: start: 19940101, end: 20030101
  6. ORLISTAT [Concomitant]
     Indication: OBESITY
     Dates: start: 20040101
  7. XENICAL [Concomitant]
     Indication: OBESITY
     Dates: start: 20021001

REACTIONS (6)
  - AGGRESSION [None]
  - ANGER [None]
  - IRRITABILITY [None]
  - PAROSMIA [None]
  - SUICIDAL IDEATION [None]
  - WITHDRAWAL SYNDROME [None]
